FAERS Safety Report 4446684-3 (Version None)
Quarter: 2004Q3

REPORT INFORMATION
  Report Type: 
  Country: None (occurrence: None)
  Receive Date: 20040902
  Receipt Date: 20020906
  Transmission Date: 20050211
  Serious: Yes (Hospitalization)
  Sender: FDA-Public Use
  Company Number: WAES 0208USA02045

PATIENT
  Age: 54 Year
  Sex: Female
  Weight: 71.2147 kg

DRUGS (8)
  1. VIOXX [Suspect]
     Indication: NEOPLASM PROPHYLAXIS
     Dosage: 25 MG/DAILY/PO
     Route: 048
     Dates: start: 20011021, end: 20020623
  2. VIOXX [Suspect]
     Indication: NEOPLASM PROPHYLAXIS
     Dosage: 25 MG/DAILY/PO
     Route: 048
     Dates: start: 20020625, end: 20020806
  3. ACETAMINOPHEN [Suspect]
     Indication: PAIN
     Dosage: 325 MG/PRN/PO
     Route: 048
     Dates: start: 20010831, end: 20020625
  4. ANTIOXIDANTS [Concomitant]
  5. CALCIUM [Concomitant]
  6. DIMENHYDRINATE [Concomitant]
  7. TAMOXIFEN CITRATE [Concomitant]
  8. MULTIVITAMIN [Concomitant]

REACTIONS (8)
  - HYPERTENSION [None]
  - INFARCTION [None]
  - MENORRHAGIA [None]
  - NECROSIS [None]
  - UTERINE LEIOMYOMA [None]
  - UTERINE POLYP [None]
  - UTERINE PROLAPSE [None]
  - VAGINAL HAEMORRHAGE [None]
